FAERS Safety Report 16444094 (Version 1)
Quarter: 2019Q2

REPORT INFORMATION
  Report Type: Spontaneous
  Country: GB (occurrence: GB)
  Receive Date: 20190618
  Receipt Date: 20190618
  Transmission Date: 20190711
  Serious: Yes (Other)
  Sender: FDA-Public Use
  Company Number: GB-ACCORD-133410

PATIENT
  Age: 17 Year
  Sex: Female

DRUGS (5)
  1. LAMOTRIGINE. [Interacting]
     Active Substance: LAMOTRIGINE
     Indication: EPILEPSY
     Dosage: 400 MG, QD, ALSO RECEIVED SAME DOSE ON UNKNOWN DATE.
  2. NORETHISTERONE [Interacting]
     Active Substance: NORETHINDRONE
     Indication: ORAL CONTRACEPTION
     Route: 048
  3. VALPROIC ACID. [Suspect]
     Active Substance: VALPROIC ACID
     Indication: EPILEPSY
     Dosage: 1200 MG, QD, ALSO RECEIVED AS 2000 MG DOSE.
  4. LEVONORGESTREL. [Suspect]
     Active Substance: LEVONORGESTREL
     Indication: PRODUCT USED FOR UNKNOWN INDICATION
     Dosage: UNK
  5. ZONISAMIDE. [Concomitant]
     Active Substance: ZONISAMIDE
     Dosage: 100 MG, QD

REACTIONS (5)
  - Petit mal epilepsy [Unknown]
  - Fatigue [Unknown]
  - Therapeutic response decreased [Unknown]
  - Drug interaction [Unknown]
  - Condition aggravated [Unknown]
